FAERS Safety Report 21994429 (Version 2)
Quarter: 2023Q2

REPORT INFORMATION
  Report Type: Spontaneous
  Country: CH (occurrence: CH)
  Receive Date: 20230215
  Receipt Date: 20230413
  Transmission Date: 20230722
  Serious: Yes (Other)
  Sender: FDA-Public Use
  Company Number: CH-SAMSUNG BIOEPIS-SB-2023-03884

PATIENT
  Age: 42 Year
  Sex: Female

DRUGS (6)
  1. ADALIMUMAB [Suspect]
     Active Substance: ADALIMUMAB
     Indication: Spondylitis
     Dosage: UNKNOWN
     Route: 065
  2. ADALIMUMAB [Suspect]
     Active Substance: ADALIMUMAB
     Indication: Hypergammaglobulinaemia benign monoclonal
  3. METHOTREXATE [Concomitant]
     Active Substance: METHOTREXATE
     Indication: Hypergammaglobulinaemia benign monoclonal
     Dosage: UNKNOWN
     Route: 065
  4. METHOTREXATE [Concomitant]
     Active Substance: METHOTREXATE
     Indication: Spondylitis
  5. IBUPROFEN [Concomitant]
     Active Substance: IBUPROFEN
     Indication: Hypergammaglobulinaemia benign monoclonal
     Dosage: UNKNOWN
     Route: 065
  6. IBUPROFEN [Concomitant]
     Active Substance: IBUPROFEN
     Indication: Spondylitis

REACTIONS (3)
  - Crystal nephropathy [Recovered/Resolved]
  - Plasma cell myeloma [Unknown]
  - Off label use [Unknown]
